FAERS Safety Report 5324951-9 (Version None)
Quarter: 2007Q2

REPORT INFORMATION
  Report Type: 
  Country: None (occurrence: None)
  Receive Date: 20070509
  Receipt Date: 20070427
  Transmission Date: 20071010
  Serious: Yes (Hospitalization)
  Sender: FDA-Public Use
  Company Number: 163-21880-07040329

PATIENT
  Age: 59 Year
  Sex: Female

DRUGS (2)
  1. REVLIMID [Suspect]
     Indication: MULTIPLE MYELOMA
     Dosage: 15 MG, OD, ORAL
     Route: 048
     Dates: start: 20070307
  2. XANAX [Concomitant]

REACTIONS (4)
  - ADVERSE EVENT [None]
  - FATIGUE [None]
  - FEELING ABNORMAL [None]
  - TREMOR [None]
